FAERS Safety Report 20651506 (Version 1)
Quarter: 2022Q1

REPORT INFORMATION
  Report Type: Report from Study
  Country: CA (occurrence: CA)
  Receive Date: 20220330
  Receipt Date: 20220330
  Transmission Date: 20220423
  Serious: Yes (Other)
  Sender: FDA-Public Use
  Company Number: CA-ABBVIE-22K-028-4335602-00

PATIENT
  Age: 66 Year
  Sex: Male

DRUGS (4)
  1. SKYRIZI [Suspect]
     Active Substance: RISANKIZUMAB-RZAA
     Indication: Psoriasis
     Route: 058
     Dates: start: 20210211
  2. MODERNA COVID-19 VACCINE [Concomitant]
     Active Substance: ELASOMERAN
     Indication: COVID-19 prophylaxis
     Dosage: FIRST DOSE
     Route: 030
     Dates: start: 2021, end: 2021
  3. MODERNA COVID-19 VACCINE [Concomitant]
     Active Substance: ELASOMERAN
     Dosage: SECOND DOSE
     Route: 030
     Dates: start: 2021, end: 2021
  4. COVID-19 VACCINE [Concomitant]
     Indication: COVID-19 prophylaxis
     Dosage: THIRD DOSE
     Route: 030
     Dates: start: 202202, end: 202202

REACTIONS (4)
  - Neoplasm malignant [Recovered/Resolved]
  - Immunodeficiency [Unknown]
  - Hypoaesthesia [Recovered/Resolved]
  - Injection site pain [Recovered/Resolved]

NARRATIVE: CASE EVENT DATE: 20220201
